FAERS Safety Report 5909348-2 (Version None)
Quarter: 2008Q4

REPORT INFORMATION
  Report Type: 
  Country: None (occurrence: None)
  Receive Date: 20081006
  Receipt Date: 20080924
  Transmission Date: 20090506
  Serious: Yes (Other)
  Sender: FDA-Public Use
  Company Number: US-PFIZER INC-2008081271

PATIENT
  Sex: Female
  Weight: 54.5 kg

DRUGS (7)
  1. TIKOSYN [Suspect]
     Indication: ATRIAL FIBRILLATION
  2. TIKOSYN [Suspect]
     Indication: ARRHYTHMIA
     Dates: start: 20080401
  3. ATENOLOL [Suspect]
     Dates: end: 20080401
  4. ACIPHEX [Concomitant]
  5. ATIVAN [Concomitant]
  6. SYNTHROID [Concomitant]
  7. AMOXICILLIN [Concomitant]

REACTIONS (6)
  - ABDOMINAL DISCOMFORT [None]
  - CARDIAC PACEMAKER INSERTION [None]
  - DYSPNOEA [None]
  - FATIGUE [None]
  - NAUSEA [None]
  - VISION BLURRED [None]
